FAERS Safety Report 21614015 (Version 1)
Quarter: 2022Q4

REPORT INFORMATION
  Report Type: Spontaneous
  Country: US (occurrence: None)
  Receive Date: 20221116
  Receipt Date: 20221116
  Transmission Date: 20230113
  Serious: No
  Sender: FDA-Public Use
  Company Number: None

PATIENT

DRUGS (2)
  1. VITAMIN B1 [Suspect]
     Active Substance: THIAMINE HYDROCHLORIDE
  2. VITAMIN D3 [Suspect]
     Active Substance: CHOLECALCIFEROL

REACTIONS (1)
  - Product packaging confusion [None]
